FAERS Safety Report 8005010-3 (Version None)
Quarter: 2011Q4

REPORT INFORMATION
  Report Type: 
  Country: None (occurrence: None)
  Receive Date: 20111220
  Receipt Date: 20111213
  Transmission Date: 20120403
  Serious: Yes (Hospitalization)
  Sender: FDA-Public Use
  Company Number: 2011SP058630

PATIENT
  Age: 50 Year
  Sex: Female
  Weight: 42 kg

DRUGS (11)
  1. MAGNESIUM OXIDE [Concomitant]
  2. ZONISAMIDE [Concomitant]
  3. TEMODAL [Suspect]
     Indication: ANAPLASTIC ASTROCYTOMA
     Dosage: 150 MG/M2/QD;PO 200 MG/M2;QD;PO
     Route: 048
     Dates: start: 20071219, end: 20090707
  4. TEMODAL [Suspect]
     Indication: ANAPLASTIC ASTROCYTOMA
     Dosage: 150 MG/M2/QD;PO 200 MG/M2;QD;PO
     Route: 048
     Dates: start: 20070629, end: 20070703
  5. TEMODAL [Suspect]
     Indication: ANAPLASTIC ASTROCYTOMA
     Dosage: 150 MG/M2/QD;PO 200 MG/M2;QD;PO
     Route: 048
     Dates: start: 20061124, end: 20070417
  6. TEMODAL [Suspect]
     Indication: ANAPLASTIC ASTROCYTOMA
     Dosage: 150 MG/M2/QD;PO 200 MG/M2;QD;PO
     Route: 048
     Dates: start: 20070815, end: 20071021
  7. TEMODAL [Suspect]
     Indication: ANAPLASTIC ASTROCYTOMA
     Dosage: 150 MG/M2/QD;PO 200 MG/M2;QD;PO
     Route: 048
     Dates: start: 20061027, end: 20061031
  8. PURSENNID [Concomitant]
  9. FAMOTIDINE [Concomitant]
  10. VALPROATE SODIUM [Concomitant]
  11. PREDNISOLONE [Concomitant]

REACTIONS (2)
  - FALL [None]
  - HAND FRACTURE [None]
